FAERS Safety Report 5373667-1 (Version None)
Quarter: 2007Q2

REPORT INFORMATION
  Report Type: 
  Country: None (occurrence: None)
  Receive Date: 20070628
  Receipt Date: 20070615
  Transmission Date: 20071010
  Serious: Yes (Other)
  Sender: FDA-Public Use
  Company Number: BR-BRISTOL-MYERS SQUIBB COMPANY-13822713

PATIENT
  Age: 40 Year
  Sex: Female

DRUGS (2)
  1. REYATAZ [Suspect]
     Indication: HIV INFECTION
     Route: 048
     Dates: start: 20070501, end: 20070501
  2. BIOVIR [Concomitant]
     Indication: HIV INFECTION
     Route: 048
     Dates: end: 20070501

REACTIONS (5)
  - DRY SKIN [None]
  - EPIDERMOLYSIS [None]
  - ERYTHEMA [None]
  - PRURITUS [None]
  - SKIN EXFOLIATION [None]
